FAERS Safety Report 11836727 (Version 2)
Quarter: 2016Q1

REPORT INFORMATION
  Report Type: Spontaneous
  Country: None (occurrence: US)
  Receive Date: 20151215
  Receipt Date: 20160105
  Transmission Date: 20160525
  Serious: No
  Sender: FDA-Public Use
  Company Number: US-RARE DISEASE THERAPEUTICS, INC.-1045495

PATIENT
  Age: 20 Year
  Sex: Female
  Weight: 59 kg

DRUGS (5)
  1. HYDROXYCOBALAMIN [Concomitant]
  2. L-CARNITINE [Concomitant]
     Active Substance: LEVOCARNITINE
  3. FOLIC ACID. [Concomitant]
     Active Substance: FOLIC ACID
  4. LEUCOVORIN CALCIUM. [Concomitant]
     Active Substance: LEUCOVORIN CALCIUM
  5. CYSTADANE [Suspect]
     Active Substance: BETAINE
     Indication: VITAMIN B12 DEFICIENCY
     Route: 048
     Dates: start: 20140711

REACTIONS (8)
  - Overdose [Unknown]
  - Blister [Unknown]
  - Aggression [None]
  - Erythema [Unknown]
  - Treatment noncompliance [Unknown]
  - Tremor [None]
  - Hallucination [None]
  - Metabolic disorder [None]
